FAERS Safety Report 13530917 (Version 2)
Quarter: 2017Q3

REPORT INFORMATION
  Report Type: Spontaneous
  Country: GB (occurrence: GB)
  Receive Date: 20170510
  Receipt Date: 20170731
  Transmission Date: 20171127
  Serious: Yes (Disabling, Other)
  Sender: FDA-Public Use
  Company Number: GB-TORRENT-00015236

PATIENT
  Age: 62 Year
  Sex: Female
  Weight: 86 kg

DRUGS (17)
  1. PNEUMOVAX II [Concomitant]
     Active Substance: PNEUMOCOCCAL VACCINE POLYVALENT
  2. GABAPENTIN. [Concomitant]
     Active Substance: GABAPENTIN
  3. MONOMIL XL [Concomitant]
     Active Substance: ISOSORBIDE MONONITRATE
  4. MST CONTINUS [Concomitant]
     Active Substance: MORPHINE SULFATE
  5. OMEPRAZOLE. [Concomitant]
     Active Substance: OMEPRAZOLE
  6. CLOBETASOL [Concomitant]
     Active Substance: CLOBETASOL
  7. GLYCERYL TRINITRATE [Concomitant]
     Active Substance: NITROGLYCERIN
  8. VENLAFAXINE [Concomitant]
     Active Substance: VENLAFAXINE HYDROCHLORIDE
  9. QUETIAPINE/QUETIAPINE FUMARATE [Suspect]
     Active Substance: QUETIAPINE FUMARATE
  10. ATORVASTATIN [Concomitant]
     Active Substance: ATORVASTATIN
  11. INFLUENZA VACCINE (SPLIT VIRION, INACTIVATED) [Concomitant]
     Active Substance: INFLUENZA VIRUS VACCINE
  12. DOCUSATE [Concomitant]
     Active Substance: DOCUSATE
  13. DERMOL [Concomitant]
     Active Substance: BENZALKONIUM CHLORIDE\CHLORHEXIDINE HYDROCHLORIDE\ISOPROPYL MYRISTATE\PARAFFIN
  14. ASPIRIN. [Concomitant]
     Active Substance: ASPIRIN
  15. FELODIPINE. [Concomitant]
     Active Substance: FELODIPINE
  16. PROCHLORPERAZINE. [Concomitant]
     Active Substance: PROCHLORPERAZINE
  17. PARACETAMOL [Concomitant]
     Active Substance: ACETAMINOPHEN

REACTIONS (6)
  - Tremor [Recovering/Resolving]
  - Mental disorder [Unknown]
  - Tearfulness [Recovering/Resolving]
  - Food interaction [Unknown]
  - Feeling of body temperature change [Recovering/Resolving]
  - Hyperhidrosis [Recovering/Resolving]

NARRATIVE: CASE EVENT DATE: 20170301
